FAERS Safety Report 8479302-8 (Version None)
Quarter: 2012Q2

REPORT INFORMATION
  Report Type: 
  Country: None (occurrence: None)
  Receive Date: 20120629
  Receipt Date: 20120626
  Transmission Date: 20120825
  Serious: Yes (Other)
  Sender: FDA-Public Use
  Company Number: GR-GLAXOSMITHKLINE-B0807344A

PATIENT
  Age: 60 Year
  Sex: Male

DRUGS (2)
  1. INSULIN [Concomitant]
     Route: 065
  2. PAZOPANIB [Suspect]
     Indication: RENAL CANCER
     Route: 065
     Dates: start: 20120101

REACTIONS (4)
  - TREATMENT NONCOMPLIANCE [None]
  - BRADYCARDIA [None]
  - HYPOTENSION [None]
  - RENAL FAILURE [None]
